FAERS Safety Report 20068175 (Version 1)
Quarter: 2021Q4

REPORT INFORMATION
  Report Type: Spontaneous
  Country: US (occurrence: None)
  Receive Date: 20211112
  Receipt Date: 20211112
  Transmission Date: 20220303
  Serious: No
  Sender: FDA-Public Use
  Company Number: None

PATIENT
  Age: 27 Year
  Sex: Female
  Weight: 56.25 kg

DRUGS (3)
  1. ELURYNG [Suspect]
     Active Substance: ETHINYL ESTRADIOL\ETONOGESTREL
     Indication: Polycystic ovaries
     Dosage: OTHER QUANTITY : 1 RING;?OTHER FREQUENCY : EVERY 4 WEEKS;?
     Route: 067
     Dates: start: 20211021, end: 20211110
  2. ELURYNG [Suspect]
     Active Substance: ETHINYL ESTRADIOL\ETONOGESTREL
     Indication: Dysmenorrhoea
  3. ELURYNG [Suspect]
     Active Substance: ETHINYL ESTRADIOL\ETONOGESTREL
     Indication: Endometriosis

REACTIONS (8)
  - Product substitution issue [None]
  - Mood swings [None]
  - Irritability [None]
  - Depression [None]
  - Negative thoughts [None]
  - Anxiety [None]
  - Abdominal discomfort [None]
  - Acne [None]

NARRATIVE: CASE EVENT DATE: 20211108
